FAERS Safety Report 7813200-5 (Version None)
Quarter: 2011Q4

REPORT INFORMATION
  Report Type: 
  Country: None (occurrence: None)
  Receive Date: 20111013
  Receipt Date: 20111005
  Transmission Date: 20120403
  Serious: Yes (Hospitalization)
  Sender: FDA-Public Use
  Company Number: US-SANOFI-AVENTIS-2011SA066413

PATIENT
  Age: 69 Year
  Sex: Male

DRUGS (4)
  1. SOLOSTAR [Suspect]
  2. LANTUS [Suspect]
     Dosage: DOSE:50 UNIT(S)
     Route: 058
  3. LANTUS [Suspect]
     Dosage: DOSE:50 UNIT(S)
     Route: 058
  4. LANTUS [Suspect]
     Dosage: DOSE:75 UNIT(S)
     Route: 058

REACTIONS (6)
  - SPLENECTOMY [None]
  - ANAEMIA [None]
  - PLATELET COUNT DECREASED [None]
  - RENAL FAILURE [None]
  - URINARY TRACT INFECTION [None]
  - HEPATIC CIRRHOSIS [None]
